FAERS Safety Report 12330327 (Version 1)
Quarter: 2016Q2

REPORT INFORMATION
  Report Type: Spontaneous
  Country: US (occurrence: US)
  Receive Date: 20160504
  Receipt Date: 20160504
  Transmission Date: 20160815
  Serious: No
  Sender: FDA-Public Use
  Company Number: US-BIOGEN-2016BI00224769

PATIENT

DRUGS (1)
  1. TECFIDERA [Suspect]
     Active Substance: DIMETHYL FUMARATE
     Indication: MULTIPLE SCLEROSIS
     Route: 065

REACTIONS (7)
  - Pain in extremity [Unknown]
  - Arthralgia [Unknown]
  - Red blood cell sedimentation rate increased [Unknown]
  - Musculoskeletal stiffness [Unknown]
  - Muscle spasms [Unknown]
  - Joint swelling [Unknown]
  - Joint lock [Unknown]
